FAERS Safety Report 5521401-4 (Version None)
Quarter: 2007Q4

REPORT INFORMATION
  Report Type: 
  Country: None (occurrence: None)
  Receive Date: 20071119
  Receipt Date: 20071114
  Transmission Date: 20080405
  Serious: Yes (Hospitalization)
  Sender: FDA-Public Use
  Company Number: US-MERCK-0711USA03160

PATIENT
  Age: 62 Year
  Sex: Male

DRUGS (2)
  1. ZOCOR [Suspect]
     Indication: BLOOD CHOLESTEROL
     Route: 048
     Dates: start: 20040101, end: 20071114
  2. ATENOLOL [Concomitant]
     Route: 065

REACTIONS (1)
  - COLITIS ULCERATIVE [None]
